FAERS Safety Report 5987728-7 (Version None)
Quarter: 2008Q4

REPORT INFORMATION
  Report Type: 
  Country: None (occurrence: None)
  Receive Date: 20081209
  Receipt Date: 20081204
  Transmission Date: 20090506
  Serious: Yes (Hospitalization, Other)
  Sender: FDA-Public Use
  Company Number: PT-ROXANE LABORATORIES, INC.-2008-RO-00345RO

PATIENT
  Age: 41 Year
  Sex: Female

DRUGS (5)
  1. CLARITHROMYCIN [Suspect]
     Indication: URINARY TRACT INFECTION
     Dosage: 1000MG
  2. DIAZEPAM [Suspect]
     Indication: DEPRESSION
     Dosage: 10MG
  3. PAROXETINE HCL [Suspect]
     Indication: DEPRESSION
     Dosage: 20MG
  4. CHLORPROMAZINE [Concomitant]
     Indication: MANIA
     Dosage: 100MG
  5. LORAZEPAM [Concomitant]
     Indication: MANIA
     Dosage: 2.5MG

REACTIONS (2)
  - INSOMNIA [None]
  - MANIA [None]
